FAERS Safety Report 5808522-3 (Version None)
Quarter: 2008Q3

REPORT INFORMATION
  Report Type: 
  Country: None (occurrence: None)
  Receive Date: 20080714
  Receipt Date: 20080704
  Transmission Date: 20090109
  Serious: Yes (Hospitalization)
  Sender: FDA-Public Use
  Company Number: BR-RANBAXY-2008R5-16249

PATIENT

DRUGS (1)
  1. AMOXACILINA SODICA [Suspect]
     Indication: DENTAL TREATMENT
     Dosage: UNK
     Route: 048
     Dates: start: 20080622, end: 20080624

REACTIONS (1)
  - PANCREATITIS [None]
